FAERS Safety Report 24118257 (Version 1)
Quarter: 2024Q3

REPORT INFORMATION
  Report Type: Report from Study
  Country: US (occurrence: None)
  Receive Date: 20240722
  Receipt Date: 20240722
  Transmission Date: 20241016
  Serious: Yes (Hospitalization)
  Sender: ASTRAZENECA
  Company Number: 2022A404440

PATIENT
  Age: 82 Year
  Sex: Male

DRUGS (1)
  1. LYNPARZA [Suspect]
     Active Substance: OLAPARIB
     Route: 048
     Dates: start: 20220921, end: 20221205

REACTIONS (5)
  - Arrhythmia [Recovered/Resolved]
  - Hypotension [Recovered/Resolved]
  - Dyspnoea [Not Recovered/Not Resolved]
  - Nasopharyngitis [Unknown]
  - Influenza [Unknown]

NARRATIVE: CASE EVENT DATE: 20221101
